FAERS Safety Report 22029576 (Version 1)
Quarter: 2023Q1

REPORT INFORMATION
  Report Type: Spontaneous
  Country: US (occurrence: US)
  Receive Date: 20230223
  Receipt Date: 20230223
  Transmission Date: 20230417
  Serious: No
  Sender: FDA-Public Use
  Company Number: US-PFIZER INC-PV202300013751

PATIENT
  Age: 64 Year
  Sex: Male
  Weight: 81.65 kg

DRUGS (2)
  1. DEPO-TESTOSTERONE [Suspect]
     Active Substance: TESTOSTERONE CYPIONATE
     Indication: Hormone replacement therapy
     Dosage: 2000 MG (10 ML VIAL, 2,000 MG)
     Dates: start: 1994
  2. DEPO-TESTOSTERONE [Suspect]
     Active Substance: TESTOSTERONE CYPIONATE
     Dosage: 0.5 ML, 2X/WEEK
     Route: 030
     Dates: start: 1994

REACTIONS (5)
  - Memory impairment [Unknown]
  - Visual impairment [Unknown]
  - Visual acuity reduced [Unknown]
  - Product dose omission issue [Unknown]
  - Product supply issue [Unknown]
